FAERS Safety Report 23470768 (Version 2)
Quarter: 2024Q1

REPORT INFORMATION
  Report Type: Report from Study
  Country: CL (occurrence: CL)
  Receive Date: 20240202
  Receipt Date: 20240209
  Transmission Date: 20240410
  Serious: Yes (Other)
  Sender: FDA-Public Use
  Company Number: CL-JNJFOC-20240178927

PATIENT
  Age: 61 Year
  Sex: Female

DRUGS (3)
  1. SIMPONI [Suspect]
     Active Substance: GOLIMUMAB
     Indication: Psoriatic arthropathy
     Dosage: LAST DRUG APPLICATION: 26-JAN-2024
     Route: 058
     Dates: start: 20230615
  2. SIMPONI [Suspect]
     Active Substance: GOLIMUMAB
     Route: 058
  3. METHOTREXATE [Suspect]
     Active Substance: METHOTREXATE

REACTIONS (5)
  - Pneumonia [Unknown]
  - Pulmonary fibrosis [Unknown]
  - Urinary tract infection [Unknown]
  - Dysphonia [Unknown]
  - Aphonia [Unknown]

NARRATIVE: CASE EVENT DATE: 20230901
